FAERS Safety Report 5313307-0 (Version None)
Quarter: 2007Q2

REPORT INFORMATION
  Report Type: 
  Country: None (occurrence: None)
  Receive Date: 20070501
  Receipt Date: 20070420
  Transmission Date: 20071010
  Serious: Yes (Other)
  Sender: FDA-Public Use
  Company Number: PHFR2007GB00640

PATIENT
  Age: 52 Year
  Sex: Female
  Weight: 348 kg

DRUGS (9)
  1. CLOZARIL [Suspect]
     Indication: SCHIZOPHRENIA
     Dosage: UNK, UNK
     Route: 048
     Dates: start: 20021123, end: 20070112
  2. CLOZARIL [Suspect]
     Route: 048
     Dates: start: 20070221
  3. CITALOPRAM HYDROBROMIDE [Concomitant]
     Indication: DEPRESSION
     Dosage: 20MG/DAY
     Route: 048
  4. METFORMIN HCL [Concomitant]
     Indication: DIABETES MELLITUS
     Dosage: 1500MG/DAY
     Route: 048
  5. GLICLAZIDE [Concomitant]
     Indication: DIABETES MELLITUS
     Dosage: 40MG/DAY
     Route: 048
  6. FYBOGEL [Concomitant]
     Indication: CONSTIPATION
     Dosage: 1 SACHET DAILY
     Route: 048
  7. LORAZEPAM [Concomitant]
     Indication: ANXIETY
     Dosage: 2 MG, PRN
     Route: 048
     Dates: start: 20070112
  8. CHLORPROMAZINE [Concomitant]
     Dosage: PRN
     Route: 065
  9. PROCYCLIDINE HYDROCHLORIDE 2MG TAB [Concomitant]
     Dosage: PRN
     Route: 065

REACTIONS (7)
  - BLOOD THYROID STIMULATING HORMONE DECREASED [None]
  - CATATONIA [None]
  - DELUSION [None]
  - HALLUCINATION [None]
  - ORAL INTAKE REDUCED [None]
  - THYROXINE FREE INCREASED [None]
  - WAXY FLEXIBILITY [None]
